FAERS Safety Report 10331525 (Version 2)
Quarter: 2014Q4

REPORT INFORMATION
  Report Type: Spontaneous
  Country: IT (occurrence: None)
  Receive Date: 20140718
  Receipt Date: 20141024
  Transmission Date: 20150528
  Serious: Yes (Life-Threatening, Hospitalization)
  Sender: FDA-Public Use
  Company Number: IT-H14001-14-00217

PATIENT
  Age: 49 Year
  Sex: Female

DRUGS (2)
  1. AMIODARONE [Suspect]
     Active Substance: AMIODARONE
     Indication: ATRIAL FIBRILLATION
     Dosage: 300 MG IN 100 ML SALINE (TOTAL)
     Route: 041
     Dates: start: 20140628, end: 20140628
  2. CORDARONE(AMIODARONE HYDROCHLORIDE)(UKNOWN)(AMIODARONE HYDROCHLORIDE) [Concomitant]

REACTIONS (5)
  - Dyspnoea [None]
  - Oxygen saturation decreased [None]
  - Cyanosis [None]
  - Bronchospasm [None]
  - Chest discomfort [None]

NARRATIVE: CASE EVENT DATE: 20140628
